FAERS Safety Report 6136549-3 (Version None)
Quarter: 2009Q1

REPORT INFORMATION
  Report Type: 
  Country: None (occurrence: None)
  Receive Date: 20090330
  Receipt Date: 20090318
  Transmission Date: 20090719
  Serious: Yes (Hospitalization)
  Sender: FDA-Public Use
  Company Number: ES-PFIZER INC-2008153799

PATIENT

DRUGS (6)
  1. PEGVISOMANT [Suspect]
     Indication: ACROMEGALY
     Dosage: 10 MG, 1X/DAY
     Route: 058
     Dates: start: 20080520, end: 20081209
  2. PEGVISOMANT [Suspect]
     Dosage: 15 MG, 1X/DAY
     Route: 058
     Dates: start: 20081210, end: 20090228
  3. TOPAMAX [Concomitant]
     Dosage: 50 MG, 2X/DAY
     Route: 048
     Dates: start: 20080807
  4. TROPARGAL [Concomitant]
     Dosage: UNK
     Route: 048
     Dates: start: 20080807
  5. OMEPRAZOLE [Concomitant]
     Dosage: UNK
     Route: 048
  6. NAPROXEN [Concomitant]
     Dosage: UNK
     Route: 048

REACTIONS (1)
  - ANAL FISSURE [None]
